FAERS Safety Report 5952566-8 (Version None)
Quarter: 2008Q4

REPORT INFORMATION
  Report Type: 
  Country: None (occurrence: None)
  Receive Date: 20081113
  Receipt Date: 20081105
  Transmission Date: 20090506
  Serious: Yes (Hospitalization)
  Sender: FDA-Public Use
  Company Number: JP-GILEAD-2008-0018896

PATIENT
  Sex: Female

DRUGS (5)
  1. TRUVADA [Suspect]
     Indication: HIV INFECTION
     Route: 048
     Dates: start: 20061101
  2. NORVIR [Concomitant]
     Indication: HIV INFECTION
     Dates: start: 20061101
  3. REYATAZ [Concomitant]
     Indication: HIV INFECTION
     Dates: start: 20061101
  4. VALTREX [Concomitant]
     Dates: start: 20070401
  5. MEVALOTIN [Concomitant]
     Dates: start: 20070401

REACTIONS (1)
  - SPINAL COMPRESSION FRACTURE [None]
